FAERS Safety Report 8463157-1 (Version None)
Quarter: 2012Q2

REPORT INFORMATION
  Report Type: 
  Country: None (occurrence: None)
  Receive Date: 20120625
  Receipt Date: 20120611
  Transmission Date: 20120825
  Serious: Yes (Other)
  Sender: FDA-Public Use
  Company Number: DE-MYLANLABS-2012S1012722

PATIENT
  Age: 18 Year
  Sex: Male

DRUGS (6)
  1. CYSTAGON [Suspect]
     Route: 048
     Dates: start: 20120201
  2. CYSTAGON [Suspect]
     Indication: CYSTINOSIS
     Dosage: 32MG/KG
     Route: 048
     Dates: start: 19940101, end: 20120201
  3. PROPRANOLOL HCL [Concomitant]
  4. AMLODIPINE [Concomitant]
  5. ELECTROLYTE /00909901/ [Concomitant]
  6. VITAMIN D [Concomitant]

REACTIONS (8)
  - RASH [None]
  - ECZEMA [None]
  - DERMATITIS [None]
  - SKIN FRAGILITY [None]
  - SKIN EXFOLIATION [None]
  - SKIN STRIAE [None]
  - CONFLUENT AND RETICULATE PAPILLOMATOSIS [None]
  - SKIN REACTION [None]
